FAERS Safety Report 6220034-4 (Version None)
Quarter: 2009Q2

REPORT INFORMATION
  Report Type: 
  Country: None (occurrence: None)
  Receive Date: 20090609
  Receipt Date: 20090528
  Transmission Date: 20091009
  Serious: Yes (Other)
  Sender: FDA-Public Use
  Company Number: PHHY2009BR20906

PATIENT
  Sex: Female

DRUGS (6)
  1. DIOVAN HCT [Suspect]
     Indication: BLOOD PRESSURE MANAGEMENT
     Dosage: 1 DF/DAY
     Route: 048
     Dates: start: 20080501
  2. DIOVAN HCT [Suspect]
     Dosage: 1 DF, BID
     Route: 048
  3. CALCIUM CARBONATE W/VITAMIN D NOS [Concomitant]
     Indication: OSTEOPOROSIS
     Dosage: 600+400 MG, QHS
     Route: 048
     Dates: start: 20090201
  4. ALENDRONATE SODIUM [Concomitant]
     Indication: OSTEOPOROSIS
     Dosage: 70 MG, QW
     Dates: start: 20090201
  5. ALENDRONATE SODIUM [Concomitant]
     Indication: OSTEOPENIA
  6. ATORVASTATIN CALCIUM [Concomitant]
     Indication: BLOOD CHOLESTEROL INCREASED
     Dosage: 15 MG, QHS
     Route: 048
     Dates: start: 20090511

REACTIONS (7)
  - BLOOD CHOLESTEROL INCREASED [None]
  - BLOOD PRESSURE FLUCTUATION [None]
  - BLOOD PRESSURE INCREASED [None]
  - HEMICEPHALALGIA [None]
  - LOW DENSITY LIPOPROTEIN INCREASED [None]
  - OSTEOPENIA [None]
  - OSTEOPOROSIS [None]
